FAERS Safety Report 21712065 (Version 2)
Quarter: 2024Q4

REPORT INFORMATION
  Report Type: Report from Study
  Country: FR (occurrence: FR)
  Receive Date: 20221212
  Receipt Date: 20241010
  Transmission Date: 20250115
  Serious: No
  Sender: KYOWA
  Company Number: FR-KYOWAKIRIN-2022BKK019137

PATIENT

DRUGS (2)
  1. BUROSUMAB [Suspect]
     Active Substance: BUROSUMAB
     Indication: Hereditary hypophosphataemic rickets
     Dosage: 10 MG, 1X/2 WEEKS
     Route: 065
     Dates: start: 20220921
  2. VITAMIN D NOS [Suspect]
     Active Substance: CHOLECALCIFEROL\ERGOCALCIFEROL
     Indication: Hereditary hypophosphataemic rickets
     Dosage: 1 VIAL  EVERY 3 MONTHS
     Route: 065
     Dates: start: 20210614

REACTIONS (1)
  - Contraindicated product administered [Unknown]
